FAERS Safety Report 4901294-6 (Version None)
Quarter: 2006Q1

REPORT INFORMATION
  Report Type: 
  Country: None (occurrence: None)
  Receive Date: 20060202
  Receipt Date: 20060130
  Transmission Date: 20060701
  Serious: Yes (Death)
  Sender: FDA-Public Use
  Company Number: 2005BI022271

PATIENT
  Age: 54 Year
  Sex: Female

DRUGS (1)
  1. AVONEX [Suspect]
     Indication: MULTIPLE SCLEROSIS
     Dosage: 30 UG; QW; IM
     Route: 030
     Dates: start: 20020808, end: 20051201

REACTIONS (4)
  - BACK PAIN [None]
  - CARDIAC FAILURE [None]
  - DYSLIPIDAEMIA [None]
  - MYOCARDIAL INFARCTION [None]
